FAERS Safety Report 20567847 (Version 2)
Quarter: 2022Q1

REPORT INFORMATION
  Report Type: Spontaneous
  Country: FR (occurrence: FR)
  Receive Date: 20220308
  Receipt Date: 20220308
  Transmission Date: 20220423
  Serious: Yes (Other)
  Sender: FDA-Public Use
  Company Number: FR-RECORDATI-2022000856

PATIENT

DRUGS (34)
  1. OSILODROSTAT [Suspect]
     Active Substance: OSILODROSTAT
     Indication: Product used for unknown indication
     Dosage: 2 MILLIGRAM, BID (1MG 2-0-2)
     Dates: start: 20190429, end: 2019
  2. OSILODROSTAT [Suspect]
     Active Substance: OSILODROSTAT
     Dosage: 4 MILLIGRAM, BID (1MG 4-0-4)
     Dates: start: 20190527, end: 2019
  3. OSILODROSTAT [Suspect]
     Active Substance: OSILODROSTAT
     Dosage: 2 MG IN THE MORNING AND 5 MG IN THE EVENING
     Dates: start: 20190603, end: 2019
  4. OSILODROSTAT [Suspect]
     Active Substance: OSILODROSTAT
     Dosage: 5 MG IN THE MORNING AND 10 MG IN THE EVENING
     Dates: start: 20190624, end: 2019
  5. OSILODROSTAT [Suspect]
     Active Substance: OSILODROSTAT
     Dosage: 5 MG IN THE MORNING AND 10 MG IN THE EVENING
     Dates: start: 20190715, end: 2019
  6. OSILODROSTAT [Suspect]
     Active Substance: OSILODROSTAT
     Dosage: 10 MILLIGRAM, BID (10-0-10)
     Dates: start: 20190923, end: 2019
  7. OSILODROSTAT [Suspect]
     Active Substance: OSILODROSTAT
     Dosage: 5 MG IN THE MORNING AND 10 MG IN THE EVENING
     Dates: start: 20191112, end: 2019
  8. OSILODROSTAT [Suspect]
     Active Substance: OSILODROSTAT
     Dosage: 5 MILLIGRAM, BID
     Dates: start: 20191211, end: 20191230
  9. OSILODROSTAT [Suspect]
     Active Substance: OSILODROSTAT
     Dosage: 5 MILLIGRAM, QD (0-0-5)
     Dates: start: 20200102, end: 20200612
  10. OSILODROSTAT [Suspect]
     Active Substance: OSILODROSTAT
     Dosage: 5 MILLIGRAM, QD (0-0-5) IN THE EVENING
     Dates: start: 202006, end: 20210924
  11. OSILODROSTAT [Suspect]
     Active Substance: OSILODROSTAT
     Dosage: 5 MILLIGRAM
     Dates: start: 20211108, end: 20211222
  12. OSILODROSTAT [Suspect]
     Active Substance: OSILODROSTAT
     Dosage: 1 DOSAGE FORM
     Dates: start: 20211224, end: 20211224
  13. OSILODROSTAT [Suspect]
     Active Substance: OSILODROSTAT
     Dosage: UNK
     Dates: start: 20220101, end: 20220119
  14. OSILODROSTAT [Suspect]
     Active Substance: OSILODROSTAT
     Dosage: UNK
     Dates: start: 202201, end: 20220127
  15. OSILODROSTAT [Suspect]
     Active Substance: OSILODROSTAT
     Dosage: 5 MILLIGRAM
     Dates: start: 20220211
  16. PASIREOTIDE [Suspect]
     Active Substance: PASIREOTIDE
     Indication: Product used for unknown indication
     Dosage: 40 MILLIGRAM
     Dates: start: 20190411
  17. CABERGOLINE [Suspect]
     Active Substance: CABERGOLINE
     Indication: Blood corticotrophin increased
     Dosage: 0.5 MILLIGRAM, QW
     Dates: start: 20191112, end: 20200103
  18. CABERGOLINE [Suspect]
     Active Substance: CABERGOLINE
     Indication: Melanoderma
     Dosage: 0.5 MILLIGRAM, QW
     Dates: start: 20191118, end: 20210930
  19. SPIRONOLACTONE [Concomitant]
     Active Substance: SPIRONOLACTONE
     Indication: Product used for unknown indication
     Dosage: 75 MILLIGRAM
     Dates: start: 20190131
  20. SPIRONOLACTONE [Concomitant]
     Active Substance: SPIRONOLACTONE
     Dosage: 75 MILLIGRAM
     Dates: start: 20190219
  21. SPIRONOLACTONE [Concomitant]
     Active Substance: SPIRONOLACTONE
     Dosage: 75 MILLIGRAM
     Dates: start: 20190312
  22. SPIRONOLACTONE [Concomitant]
     Active Substance: SPIRONOLACTONE
     Dosage: 150 MILLIGRAM
     Dates: start: 20190624
  23. SPIRONOLACTONE [Concomitant]
     Active Substance: SPIRONOLACTONE
     Dosage: 225 MILLIGRAM
     Dates: start: 20190715
  24. SPIRONOLACTONE [Concomitant]
     Active Substance: SPIRONOLACTONE
     Dosage: 300 MILLIGRAM
     Dates: start: 20190923
  25. SPIRONOLACTONE [Concomitant]
     Active Substance: SPIRONOLACTONE
     Dosage: 300 MILLIGRAM
     Dates: start: 20191112
  26. SPIRONOLACTONE [Concomitant]
     Active Substance: SPIRONOLACTONE
     Dosage: 75 MILLIGRAM
     Dates: start: 20200511, end: 20210412
  27. SPIRONOLACTONE [Concomitant]
     Active Substance: SPIRONOLACTONE
     Dosage: 75 MILLIGRAM
     Dates: start: 20220214
  28. PROPRANOLOL [Concomitant]
     Active Substance: PROPRANOLOL HYDROCHLORIDE
     Indication: Product used for unknown indication
     Dosage: 40 MILLIGRAM, BID
     Dates: start: 20190131
  29. PROPRANOLOL [Concomitant]
     Active Substance: PROPRANOLOL HYDROCHLORIDE
     Dosage: 40 MILLIGRAM, BID
     Dates: start: 20190219
  30. PROPRANOLOL [Concomitant]
     Active Substance: PROPRANOLOL HYDROCHLORIDE
     Dosage: 40 MILLIGRAM, BID
     Dates: start: 20190312
  31. PROPRANOLOL [Concomitant]
     Active Substance: PROPRANOLOL HYDROCHLORIDE
     Dosage: 40 MILLIGRAM, BID (1-0-1)
     Dates: start: 20200511
  32. LEVOTHYROXINE SODIUM [Concomitant]
     Active Substance: LEVOTHYROXINE SODIUM
     Indication: Product used for unknown indication
     Dosage: 100 (UNITS UNSPECIFIED)
     Dates: start: 20190131
  33. LEVOTHYROXINE SODIUM [Concomitant]
     Active Substance: LEVOTHYROXINE SODIUM
     Dosage: 100 (UNITS UNSPECIFIED)
     Dates: start: 20190219
  34. LEVOTHYROXINE SODIUM [Concomitant]
     Active Substance: LEVOTHYROXINE SODIUM
     Dosage: 100 (UNITS UNSPECIFIED)
     Dates: start: 20190312

REACTIONS (6)
  - Adrenal insufficiency [Unknown]
  - COVID-19 [Unknown]
  - Vertigo [Recovered/Resolved]
  - Anxiety [Unknown]
  - Fatigue [Unknown]
  - Nausea [Unknown]

NARRATIVE: CASE EVENT DATE: 20191230
